FAERS Safety Report 7380608-4 (Version None)
Quarter: 2011Q1

REPORT INFORMATION
  Report Type: 
  Country: None (occurrence: None)
  Receive Date: 20110329
  Receipt Date: 20110321
  Transmission Date: 20110831
  Serious: Yes (Other)
  Sender: FDA-Public Use
  Company Number: US-B.I. PHARMACEUTICALS,INC./RIDGEFIELD-2011-BP-06032BP

PATIENT
  Sex: Female

DRUGS (8)
  1. PRADAXA [Suspect]
     Indication: ATRIAL FIBRILLATION
     Dosage: 150 MG
     Route: 048
     Dates: start: 20110120
  2. ANAGRELIDE HCL [Concomitant]
     Indication: PLATELET COUNT INCREASED
     Route: 048
     Dates: start: 20060101
  3. VEMLAFAXINDE [Concomitant]
     Indication: ANXIETY
     Dosage: 3.75 MG
     Route: 048
     Dates: start: 20060101
  4. DEXAZONIN [Concomitant]
     Indication: HYPERTENSION
     Route: 048
     Dates: start: 20100101
  5. REQUIP [Concomitant]
     Indication: RESTLESS LEGS SYNDROME
     Dosage: 3.75 MG
     Route: 048
     Dates: start: 20010101
  6. LOSARTAN POTASSIUM [Concomitant]
     Indication: HYPERTENSION
     Route: 048
     Dates: start: 20100101
  7. PRADAXA [Suspect]
     Indication: PROPHYLAXIS
  8. HYDROCODONE BITARTRATE [Concomitant]
     Indication: PAIN
     Route: 048
     Dates: start: 20010101

REACTIONS (7)
  - FLUID RETENTION [None]
  - HYPOAESTHESIA FACIAL [None]
  - OESOPHAGEAL DISORDER [None]
  - GASTROOESOPHAGEAL REFLUX DISEASE [None]
  - WEIGHT INCREASED [None]
  - EYE HAEMORRHAGE [None]
  - OESOPHAGEAL PAIN [None]
